FAERS Safety Report 9825014 (Version 1)
Quarter: 2013Q4

REPORT INFORMATION
  Report Type: Spontaneous
  Country: US (occurrence: None)
  Receive Date: 20131025
  Receipt Date: 20131025
  Transmission Date: 20140711
  Serious: Yes (Other)
  Sender: FDA-Public Use
  Company Number: AP356-00068-SPO-US

PATIENT
  Age: 61 Year
  Sex: Female

DRUGS (2)
  1. BELVIQ (LORCASERIN HYDROCHLORIDE) [Suspect]
     Route: 048
     Dates: start: 20130815
  2. AMLODIPINE (AMLODIPINE) [Concomitant]

REACTIONS (1)
  - Mental impairment [None]
